FAERS Safety Report 14922990 (Version 1)
Quarter: 2018Q2

REPORT INFORMATION
  Report Type: Spontaneous
  Country: US (occurrence: US)
  Receive Date: 20180503
  Receipt Date: 20180503
  Transmission Date: 20180711
  Serious: No
  Sender: FDA-Public Use
  Company Number: None

PATIENT
  Age: 40 Year
  Sex: Male
  Weight: 98.1 kg

DRUGS (6)
  1. CROMOLYN [Concomitant]
     Active Substance: CROMOLYN
  2. VITAMIN D [Concomitant]
     Active Substance: CHOLECALCIFEROL
  3. ESZOPICLONE TAB 3 MG [Suspect]
     Active Substance: ESZOPICLONE
     Indication: INSOMNIA
     Dosage: QUANTITY:1 TABLET(S); AT BEDTIME?
     Route: 048
     Dates: start: 20180501, end: 20180503
  4. METAMUCIL [Concomitant]
     Active Substance: PLANTAGO SEED
  5. CALCIUM [Concomitant]
     Active Substance: CALCIUM
  6. CLA [Concomitant]

REACTIONS (2)
  - Drug ineffective [None]
  - Product substitution issue [None]

NARRATIVE: CASE EVENT DATE: 20180501
